FAERS Safety Report 8459074-3 (Version None)
Quarter: 2012Q2

REPORT INFORMATION
  Report Type: 
  Country: None (occurrence: None)
  Receive Date: 20120622
  Receipt Date: 20120614
  Transmission Date: 20120825
  Serious: Yes (Other)
  Sender: FDA-Public Use
  Company Number: NL-AMGEN-NLDSP2012037847

PATIENT
  Age: 61 Year
  Sex: Male

DRUGS (3)
  1. ENBREL [Suspect]
     Indication: RHEUMATOID ARTHRITIS
     Dosage: 50 MG, WEEKLY
     Dates: start: 20080101
  2. METHOTREXATE SODIUM [Concomitant]
     Dosage: UNK
  3. FOLIC ACID [Concomitant]
     Dosage: UNK

REACTIONS (3)
  - INFECTION [None]
  - RIB FRACTURE [None]
  - FALL [None]
